FAERS Safety Report 11350214 (Version 8)
Quarter: 2016Q1

REPORT INFORMATION
  Report Type: Report from Study
  Country: FR (occurrence: FR)
  Receive Date: 20150807
  Receipt Date: 20160109
  Transmission Date: 20160525
  Serious: Yes (Hospitalization, Other)
  Sender: FDA-Public Use
  Company Number: FR-BRISTOL-MYERS SQUIBB COMPANY-BMS-2015-051272

PATIENT
  Age: 64 Year
  Sex: Female
  Weight: 63 kg

DRUGS (8)
  1. NOCTAMIDE [Concomitant]
     Active Substance: LORMETAZEPAM
     Indication: HYPNOTHERAPY
     Dosage: 1 MG, QD
     Route: 048
     Dates: start: 2015
  2. PREVISCAN                          /00261401/ [Concomitant]
     Active Substance: PENTOXIFYLLINE
     Indication: DEEP VEIN THROMBOSIS
     Dosage: UNK
     Route: 048
     Dates: start: 2015
  3. ATARAX [Concomitant]
     Active Substance: HYDROXYZINE\HYDROXYZINE HYDROCHLORIDE
     Indication: ANXIETY
     Dosage: 100 MG, QD
     Route: 048
     Dates: start: 2015
  4. NIVOLUMAB [Suspect]
     Active Substance: NIVOLUMAB
     Indication: NON-SMALL CELL LUNG CANCER
     Dosage: 3 MG/KG, UNK
     Route: 042
     Dates: start: 20150625, end: 20150924
  5. EUPANTOL [Concomitant]
     Active Substance: PANTOPRAZOLE SODIUM
     Indication: PROPHYLAXIS
     Dosage: 40 MG, QD
     Route: 048
     Dates: start: 2015
  6. NIVOLUMAB [Suspect]
     Active Substance: NIVOLUMAB
     Indication: LUNG ADENOCARCINOMA
     Dosage: 183 MG, UNK
     Route: 065
     Dates: start: 20150827
  7. NIVOLUMAB [Suspect]
     Active Substance: NIVOLUMAB
     Dosage: 189 MG, UNK
     Route: 065
     Dates: start: 20150924
  8. CONTRAMAL [Concomitant]
     Active Substance: TRAMADOL HYDROCHLORIDE
     Indication: PAIN
     Dosage: 100 MG, BID
     Route: 048
     Dates: start: 2015

REACTIONS (9)
  - Pericardial effusion [Recovering/Resolving]
  - Blood thyroid stimulating hormone abnormal [Unknown]
  - Pericarditis [Recovering/Resolving]
  - Pleural effusion [Recovering/Resolving]
  - Malignant neoplasm progression [Unknown]
  - Alanine aminotransferase abnormal [Unknown]
  - Aspartate aminotransferase abnormal [Unknown]
  - Blood alkaline phosphatase abnormal [Unknown]
  - Haemoglobin decreased [Unknown]

NARRATIVE: CASE EVENT DATE: 20150724
